FAERS Safety Report 7267334 (Version 3)
Quarter: 2013Q3

REPORT INFORMATION
  Report Type: Report from Study
  Country: US (occurrence: US)
  Receive Date: 20100201
  Receipt Date: 20130906
  Transmission Date: 20140515
  Serious: Yes (Congenital Anomaly)
  Sender: FDA-Public Use
  Company Number: US-GILEAD-2010-0026620

PATIENT
  Sex: Female

DRUGS (6)
  1. TRUVADA [Suspect]
     Route: 064
     Dates: start: 20090217
  2. NORVIR [Concomitant]
     Route: 048
     Dates: start: 20090312
  3. KALETRA [Concomitant]
     Route: 048
     Dates: start: 20090217, end: 20090312
  4. REYATAZ [Concomitant]
     Route: 048
     Dates: start: 20090508
  5. REYATAZ [Concomitant]
     Route: 048
     Dates: start: 20090312, end: 20090508
  6. RETROVIR [Concomitant]
     Route: 042
     Dates: start: 20090806, end: 20090807

REACTIONS (2)
  - Delayed closure of cranial sutures [Unknown]
  - Congenital acrochordon [Unknown]
